FAERS Safety Report 21415039 (Version 1)
Quarter: 2022Q4

REPORT INFORMATION
  Report Type: Spontaneous
  Country: US (occurrence: US)
  Receive Date: 20221006
  Receipt Date: 20221006
  Transmission Date: 20230113
  Serious: Yes (Hospitalization, Other)
  Sender: FDA-Public Use
  Company Number: US-AMGEN-USASP2022167498

PATIENT
  Sex: Female

DRUGS (5)
  1. FILGRASTIM [Suspect]
     Active Substance: FILGRASTIM
     Indication: Infantile genetic agranulocytosis
     Dosage: 20 MICROGRAM/KILOGRAM
     Route: 065
  2. FILGRASTIM [Suspect]
     Active Substance: FILGRASTIM
     Dosage: 5 MICROGRAM/KILOGRAM
     Route: 065
  3. FILGRASTIM [Suspect]
     Active Substance: FILGRASTIM
     Dosage: 10 MICROGRAM/KILOGRAM
     Route: 065
  4. ROMIPLOSTIM [Suspect]
     Active Substance: ROMIPLOSTIM
     Indication: Infantile genetic agranulocytosis
     Dosage: 5 MICROGRAM/KILOGRAM, QWK
     Route: 065
  5. ROMIPLOSTIM [Suspect]
     Active Substance: ROMIPLOSTIM
     Indication: Off label use
     Dosage: 10 MICROGRAM/KILOGRAM, QWK
     Route: 065

REACTIONS (19)
  - Pseudomonal sepsis [Unknown]
  - Escherichia sepsis [Unknown]
  - Candida infection [Unknown]
  - Gastroenteritis rotavirus [Unknown]
  - Bone abscess [Unknown]
  - Vaginal ulceration [Unknown]
  - Anal ulcer [Unknown]
  - Rectal abscess [Unknown]
  - Upper gastrointestinal haemorrhage [Unknown]
  - Lower gastrointestinal haemorrhage [Unknown]
  - Acute kidney injury [Unknown]
  - Hypertension [Unknown]
  - Post infection glomerulonephritis [Unknown]
  - Skin infection [Unknown]
  - Myelofibrosis [Recovering/Resolving]
  - Bone marrow reticulin fibrosis [Recovering/Resolving]
  - Off label use [Unknown]
  - Drug resistance [Unknown]
  - Therapeutic product effect incomplete [Unknown]
